FAERS Safety Report 16326833 (Version 1)
Quarter: 2019Q2

REPORT INFORMATION
  Report Type: Spontaneous
  Country: US (occurrence: US)
  Receive Date: 20190517
  Receipt Date: 20190517
  Transmission Date: 20190711
  Serious: Yes (Other)
  Sender: FDA-Public Use
  Company Number: US-ASTRAZENECA-2019SE72879

PATIENT
  Sex: Male
  Weight: 154.2 kg

DRUGS (20)
  1. RANITIDINE. [Concomitant]
     Active Substance: RANITIDINE
     Route: 048
  2. LEVETIRACETAM. [Concomitant]
     Active Substance: LEVETIRACETAM
     Indication: MULTIPLE ALLERGIES
     Route: 048
  3. BASAGLAR [Concomitant]
     Active Substance: INSULIN GLARGINE
     Indication: DIABETES MELLITUS
     Dosage: 100IU/ML AT NIGHT
  4. POTASSIUM [Concomitant]
     Active Substance: POTASSIUM
     Route: 048
  5. MAGNESIUM OXIDE. [Concomitant]
     Active Substance: MAGNESIUM OXIDE
     Route: 048
     Dates: start: 201903
  6. BYDUREON BCISE [Suspect]
     Active Substance: EXENATIDE
     Route: 058
     Dates: start: 20190428
  7. METFORMIN [Concomitant]
     Active Substance: METFORMIN HYDROCHLORIDE
     Indication: DIABETES MELLITUS
     Route: 048
  8. TAMSULOSIN [Concomitant]
     Active Substance: TAMSULOSIN
     Indication: PROPHYLAXIS
     Route: 048
  9. ACETAMINOPHEN. [Concomitant]
     Active Substance: ACETAMINOPHEN
     Indication: ARTHRITIS
     Route: 048
  10. OMEPRAZOLE. [Suspect]
     Active Substance: OMEPRAZOLE
     Indication: ABDOMINAL DISCOMFORT
     Route: 048
  11. XARELTO [Concomitant]
     Active Substance: RIVAROXABAN
     Indication: PROPHYLAXIS
     Route: 048
  12. ASPIRIN. [Concomitant]
     Active Substance: ASPIRIN
     Indication: CARDIAC DISORDER
     Route: 048
  13. ATORVASTATIN [Concomitant]
     Active Substance: ATORVASTATIN
     Route: 048
  14. METOPROLOL TARTRATE. [Suspect]
     Active Substance: METOPROLOL TARTRATE
     Indication: CARDIAC DISORDER
     Route: 048
  15. DULOXETINE. [Concomitant]
     Active Substance: DULOXETINE
     Indication: DIABETIC NEUROPATHY
     Route: 048
  16. FLECAINIDE [Concomitant]
     Active Substance: FLECAINIDE
     Indication: CARDIAC DISORDER
     Route: 048
  17. NOVOLOG [Concomitant]
     Active Substance: INSULIN ASPART
     Indication: DIABETES MELLITUS
     Route: 058
  18. LEVETIRACETAM. [Concomitant]
     Active Substance: LEVETIRACETAM
     Indication: SEIZURE
     Route: 048
  19. LOSARTAN. [Concomitant]
     Active Substance: LOSARTAN
     Indication: CARDIAC DISORDER
     Route: 048
  20. FUROSEMIDE. [Concomitant]
     Active Substance: FUROSEMIDE
     Indication: FLUID RETENTION
     Route: 048

REACTIONS (7)
  - Vein disorder [Unknown]
  - Device leakage [Unknown]
  - Skin ulcer [Unknown]
  - Blood glucose increased [Unknown]
  - Chronic obstructive pulmonary disease [Unknown]
  - Pulmonary embolism [Unknown]
  - Wrong technique in product usage process [Unknown]
